FAERS Safety Report 6648656-7 (Version None)
Quarter: 2010Q1

REPORT INFORMATION
  Report Type: 
  Country: None (occurrence: None)
  Receive Date: 20100319
  Receipt Date: 20100305
  Transmission Date: 20100710
  Serious: Yes (Hospitalization)
  Sender: FDA-Public Use
  Company Number: 232357J10USA

PATIENT
  Age: 29 Year
  Sex: Female

DRUGS (5)
  1. REBIF [Suspect]
     Indication: MULTIPLE SCLEROSIS
     Dosage: 44 MCG, 3 IN 1 WEEKS, SUBCUTANEOUS
     Route: 058
     Dates: start: 20080225, end: 20100201
  2. NEURONTIN [Concomitant]
  3. AMBIEN [Concomitant]
  4. LEXAPRO [Concomitant]
  5. WELLBUTRIN [Concomitant]

REACTIONS (8)
  - DEPRESSION [None]
  - DRUG RESISTANCE [None]
  - MIGRAINE [None]
  - MULTIPLE SCLEROSIS RELAPSE [None]
  - MUSCULAR WEAKNESS [None]
  - NEUTRALISING ANTIBODIES POSITIVE [None]
  - NUCLEAR MAGNETIC RESONANCE IMAGING SPINAL CORD ABNORMAL [None]
  - TREMOR [None]
